FAERS Safety Report 9298362 (Version 1)
Quarter: 2012Q4

REPORT INFORMATION
  Report Type: Spontaneous
  Country: US (occurrence: None)
  Receive Date: 20121009
  Receipt Date: 20121009
  Transmission Date: 20130627
  Serious: Yes (Hospitalization, Disabling, Other)
  Sender: FDA-Public Use
  Company Number: 2011MA015562

PATIENT
  Sex: Female
  Weight: 69.4 kg

DRUGS (12)
  1. METOCLOPRAMIDE TABLETS USP, 10 MG (PUREPAC) [Suspect]
     Indication: ACID REFLUX
     Dates: start: 201001, end: 201002
  2. TRAZODONE [Concomitant]
  3. PAROXETINE [Concomitant]
  4. PIROXICAM [Concomitant]
  5. HYDROCODONE W/APAP [Concomitant]
  6. PROMETHAZINE [Concomitant]
  7. TRAMADOL [Concomitant]
  8. FOLIC ACID [Concomitant]
  9. FERROUS SULFATE [Concomitant]
  10. ALPRAZOLAM [Concomitant]
  11. BENZONATATE [Concomitant]
  12. EYE OINTMENT [Concomitant]

REACTIONS (10)
  - Dystonia [None]
  - Economic problem [None]
  - Injury [None]
  - Emotional disorder [None]
  - Bone cancer [None]
  - Ankylosing spondylitis [None]
  - Angina pectoris [None]
  - Anxiety [None]
  - Mental disorder [None]
  - Dyskinesia [None]
